FAERS Safety Report 6992422-X (Version None)
Quarter: 2010Q3

REPORT INFORMATION
  Report Type: 
  Country: None (occurrence: None)
  Receive Date: 20100917
  Receipt Date: 20100907
  Transmission Date: 20110219
  Serious: Yes (Hospitalization)
  Sender: FDA-Public Use
  Company Number: PHHY2010NL59180

PATIENT
  Sex: Male
  Weight: 76 kg

DRUGS (2)
  1. RITALIN [Suspect]
     Dosage: 3DD15 MG DAILY
     Route: 048
     Dates: start: 20100329, end: 20100707
  2. FLIXOTIDE [Concomitant]
     Dosage: 250 MCG/DOSE 120 DOSES + INHALATOR, 2DD250MCG
     Dates: start: 19900101

REACTIONS (2)
  - CHEST DISCOMFORT [None]
  - DYSPNOEA [None]
